FAERS Safety Report 15590365 (Version 2)
Quarter: 2019Q1

REPORT INFORMATION
  Report Type: Spontaneous
  Country: US (occurrence: US)
  Receive Date: 20181106
  Receipt Date: 20190110
  Transmission Date: 20190417
  Serious: No
  Sender: FDA-Public Use
  Company Number: US-PFIZER INC-2018215187

PATIENT
  Age: 50 Year
  Sex: Male

DRUGS (3)
  1. LYRICA [Suspect]
     Active Substance: PREGABALIN
     Indication: PROSTATE CANCER
  2. LORTAB [Concomitant]
     Active Substance: ACETAMINOPHEN\HYDROCODONE BITARTRATE
     Indication: PROSTATE CANCER
     Dosage: 10 MG, UNK
  3. LYRICA [Suspect]
     Active Substance: PREGABALIN
     Indication: LUMBAR RADICULOPATHY
     Dosage: 300 MG, 3X/DAY
     Route: 048
     Dates: start: 2015, end: 201802

REACTIONS (2)
  - Prescribed overdose [Unknown]
  - Amnesia [Recovered/Resolved]

NARRATIVE: CASE EVENT DATE: 2015
